FAERS Safety Report 9373091 (Version 1)
Quarter: 2013Q2

REPORT INFORMATION
  Report Type: Spontaneous
  Country: US (occurrence: None)
  Receive Date: 20130625
  Receipt Date: 20130625
  Transmission Date: 20140414
  Serious: Yes (Death, Hospitalization, Other)
  Sender: FDA-Public Use
  Company Number: 2013P1008585

PATIENT
  Age: 64 Year
  Sex: Male

DRUGS (1)
  1. MORPHINE [Suspect]
     Indication: SUICIDE ATTEMPT
     Route: 048

REACTIONS (8)
  - Intentional overdose [None]
  - Suicide attempt [None]
  - Somnolence [None]
  - Respiratory rate decreased [None]
  - Oliguria [None]
  - Renal failure acute [None]
  - Myoclonus [None]
  - Cardiac arrest [None]
